FAERS Safety Report 12170950 (Version 1)
Quarter: 2016Q1

REPORT INFORMATION
  Report Type: Report from Study
  Country: US (occurrence: None)
  Receive Date: 20160311
  Receipt Date: 20160311
  Transmission Date: 20160526
  Serious: Yes (Death, Other)
  Sender: FDA-Public Use
  Company Number: US-MDT-ADR-2016-00466

PATIENT
  Age: 72 Year
  Sex: Male

DRUGS (2)
  1. COMPOUNDED BACLOFEN INTRATHECAL 150.0MCG/ML [Suspect]
     Active Substance: BACLOFEN
     Dosage: 75.02MCG/DAY
  2. DILAUDID [Suspect]
     Active Substance: HYDROMORPHONE HYDROCHLORIDE
     Dosage: 2.0005MG/DAY

REACTIONS (8)
  - Pain [None]
  - Muscular weakness [None]
  - Urinary retention [None]
  - Hypoaesthesia [None]
  - Hyperhidrosis [None]
  - Nausea [None]
  - Somnolence [None]
  - Fall [None]
